FAERS Safety Report 8560413-3 (Version None)
Quarter: 2012Q3

REPORT INFORMATION
  Report Type: 
  Country: None (occurrence: None)
  Receive Date: 20120802
  Receipt Date: 20120724
  Transmission Date: 20120928
  Serious: Yes (Hospitalization)
  Sender: FDA-Public Use
  Company Number: US-JNJFOC-20120714576

PATIENT
  Sex: Male
  Weight: 49.8 kg

DRUGS (10)
  1. REMICADE [Suspect]
     Indication: INFLAMMATORY BOWEL DISEASE
     Route: 042
     Dates: start: 20111102, end: 20120329
  2. ACETAMINOPHEN [Concomitant]
  3. METHYLPREDNISOLONE [Concomitant]
  4. PREDNISONE [Concomitant]
  5. ERGOCALCIFEROL [Concomitant]
  6. FERROUS SULFATE TAB [Concomitant]
  7. LANSOPRAZOLE [Concomitant]
  8. POLYETHYLENE GLYCOL [Concomitant]
  9. METRONIDAZOLE [Concomitant]
  10. DIPHENHYDRAMINE HCL [Concomitant]

REACTIONS (1)
  - COLECTOMY [None]
